FAERS Safety Report 7604778-5 (Version None)
Quarter: 2011Q3

REPORT INFORMATION
  Report Type: 
  Country: None (occurrence: None)
  Receive Date: 20110712
  Receipt Date: 20110705
  Transmission Date: 20111222
  Serious: Yes (Other)
  Sender: FDA-Public Use
  Company Number: PHHY2011US48820

PATIENT
  Sex: Female
  Weight: 122.4 kg

DRUGS (2)
  1. GILENYA [Suspect]
     Indication: MULTIPLE SCLEROSIS
     Dosage: 0.5 MG, QD
     Route: 048
     Dates: start: 20110510
  2. ZOLOFT [Concomitant]
     Dosage: UNK UKN, UNK

REACTIONS (4)
  - VISION BLURRED [None]
  - HEADACHE [None]
  - BLINDNESS [None]
  - VISUAL IMPAIRMENT [None]
